FAERS Safety Report 8002264-4 (Version None)
Quarter: 2011Q4

REPORT INFORMATION
  Report Type: 
  Country: None (occurrence: None)
  Receive Date: 20111222
  Receipt Date: 20110117
  Transmission Date: 20120403
  Serious: No
  Sender: FDA-Public Use
  Company Number: US-GLAXOSMITHKLINE-A0911863A

PATIENT
  Age: 40 Year
  Sex: Male

DRUGS (5)
  1. NICORETTE [Suspect]
     Indication: SMOKING CESSATION THERAPY
  2. NICORETTE [Suspect]
     Indication: EX-TOBACCO USER
  3. NICORETTE [Suspect]
  4. NICORETTE (MINT) [Suspect]
  5. NICORETTE [Suspect]
     Indication: EX-TOBACCO USER

REACTIONS (4)
  - NICOTINE DEPENDENCE [None]
  - DRUG ADMINISTRATION ERROR [None]
  - ORAL PAIN [None]
  - PAIN IN JAW [None]
